FAERS Safety Report 10436081 (Version 1)
Quarter: 2014Q3

REPORT INFORMATION
  Report Type: Spontaneous
  Country: US (occurrence: US)
  Receive Date: 20140908
  Receipt Date: 20140908
  Transmission Date: 20150326
  Serious: Yes (Other)
  Sender: FDA-Public Use
  Company Number: US-RB PHARMACEUTICALS LIMITED-RB-71081-2014

PATIENT
  Age: 44 Year
  Sex: Female

DRUGS (1)
  1. SUBOXONE [Suspect]
     Active Substance: BUPRENORPHINE HYDROCHLORIDE\NALOXONE HYDROCHLORIDE
     Indication: DRUG DEPENDENCE
     Dosage: 2-8 MG, DAILY
     Route: 060
     Dates: start: 2006, end: 2008

REACTIONS (12)
  - Adrenal neoplasm [Not Recovered/Not Resolved]
  - Pain [Recovered/Resolved]
  - Wrong technique in drug usage process [Recovered/Resolved]
  - Corneal disorder [Recovered/Resolved with Sequelae]
  - Osteomyelitis [Recovered/Resolved]
  - Staphylococcal infection [Recovered/Resolved]
  - Condition aggravated [Recovered/Resolved]
  - Blindness unilateral [None]
  - Eye infection [Recovered/Resolved with Sequelae]
  - Blindness [Not Recovered/Not Resolved]
  - Connective tissue disorder [Not Recovered/Not Resolved]
  - Drug withdrawal syndrome [Recovered/Resolved]

NARRATIVE: CASE EVENT DATE: 2006
